FAERS Safety Report 7538864-5 (Version None)
Quarter: 2011Q2

REPORT INFORMATION
  Report Type: 
  Country: None (occurrence: None)
  Receive Date: 20110610
  Receipt Date: 20110601
  Transmission Date: 20111010
  Serious: Yes (Hospitalization, Disabling)
  Sender: FDA-Public Use
  Company Number: GB-AMGEN-GBRSP2011029051

PATIENT
  Age: 82 Year
  Sex: Female

DRUGS (18)
  1. FLUTICASONE PROPIONATE [Concomitant]
     Dosage: 1 DF, 2X/DAY
     Route: 055
  2. AMITRIPTYLINE HYDROCHLORIDE [Concomitant]
     Dosage: 20 MG, 1X/DAY
  3. FERROUS SULPHATE                   /00023503/ [Concomitant]
     Dosage: 200 MG, 3X/DAY
  4. FUROSEMIDE [Concomitant]
     Dosage: UNK
  5. OMEPRAZOLE [Concomitant]
     Dosage: 40 MG, 1X/DAY
  6. ALBUTEROL [Concomitant]
     Dosage: 2 DF, AS NEEDED
  7. ZOLPIDEM [Concomitant]
     Dosage: 10 MG, 1X/DAY
  8. ENBREL [Suspect]
     Indication: RHEUMATOID ARTHRITIS
     Dosage: 50 MG, WEEKLY
     Route: 058
     Dates: start: 20110217, end: 20110317
  9. VERAPAMIL [Concomitant]
     Dosage: 240 MG, 1X/DAY
  10. FOLIC ACID [Concomitant]
     Dosage: 5 MG, 1X/DAY
  11. PREDNISOLONE [Concomitant]
     Dosage: 5 MG, 1X/DAY
  12. RISEDRONATE SODIUM [Concomitant]
     Dosage: 35 MG, WEEKLY
  13. CALCICHEW-D3 [Concomitant]
     Dosage: 1 DF, 2X/DAY
  14. ACETAMINOPHEN [Concomitant]
     Dosage: 1000 MG, 4X/DAY
  15. LEFLUNOMIDE [Concomitant]
     Dosage: 10 MG, 1X/DAY
  16. METHOTREXATE [Concomitant]
     Dosage: 2.5 MG, WEEKLY
  17. MOXONIDINE [Concomitant]
     Dosage: 200 UG, 1X/DAY
  18. TRAMADOL HCL [Concomitant]
     Dosage: 100 MG, 4X/DAY

REACTIONS (2)
  - CARDIAC FAILURE CONGESTIVE [None]
  - DYSPNOEA [None]
